FAERS Safety Report 9659525 (Version 2)
Quarter: 2013Q4

REPORT INFORMATION
  Report Type: Report from Study
  Country: BR (occurrence: BR)
  Receive Date: 20131031
  Receipt Date: 20131031
  Transmission Date: 20140711
  Serious: Yes (Other)
  Sender: FDA-Public Use
  Company Number: PHHY2013BR086985

PATIENT
  Sex: Female

DRUGS (5)
  1. ACLASTA [Suspect]
     Indication: DEMENTIA ALZHEIMER^S TYPE
     Dosage: 5 MG, UNK
     Route: 042
     Dates: start: 2013
  2. ACLASTA [Suspect]
     Indication: OFF LABEL USE
  3. ZETSIM [Concomitant]
     Dosage: UNK UKN, UNK
     Dates: start: 2013
  4. DEPURA [Concomitant]
     Dosage: UNK UKN, UNK
     Dates: start: 2013
  5. OSTEONUTRI [Concomitant]
     Dosage: UNK UKN, UNK
     Dates: start: 2013

REACTIONS (3)
  - Emphysema [Not Recovered/Not Resolved]
  - Hypersensitivity [Recovering/Resolving]
  - Cough [Recovering/Resolving]
